FAERS Safety Report 9741737 (Version 1)
Quarter: 2013Q4

REPORT INFORMATION
  Report Type: Spontaneous
  Country: FR (occurrence: FR)
  Receive Date: 20131210
  Receipt Date: 20131210
  Transmission Date: 20140711
  Serious: Yes (Life-Threatening, Hospitalization)
  Sender: FDA-Public Use
  Company Number: FR-ROCHE-1312730

PATIENT
  Age: 73 Year
  Sex: Male

DRUGS (11)
  1. CELLCEPT [Suspect]
     Indication: IMMUNOSUPPRESSION
     Route: 048
     Dates: start: 20110412
  2. TRIATEC (FRANCE) [Suspect]
     Indication: HYPERTENSION
     Dosage: 2.5 MG
     Route: 048
     Dates: start: 20121016
  3. TRIATEC (FRANCE) [Suspect]
     Route: 048
     Dates: start: 20121218, end: 20130801
  4. BACTRIM FORTE [Concomitant]
     Route: 065
  5. EXACYL [Concomitant]
  6. LANTUS [Concomitant]
     Indication: DIABETES MELLITUS
  7. NOVORAPID [Concomitant]
     Indication: DIABETES MELLITUS
  8. TRANDATE [Concomitant]
     Route: 065
     Dates: end: 201203
  9. LERCAN [Concomitant]
  10. KARDEGIC [Concomitant]
  11. APROVEL [Concomitant]

REACTIONS (1)
  - Angioedema [Recovered/Resolved]
